FAERS Safety Report 8848681 (Version 2)
Quarter: 2012Q4

REPORT INFORMATION
  Report Type: 
  Country: JP (occurrence: JP)
  Receive Date: 20121018
  Receipt Date: 20121022
  Transmission Date: 20130627
  Serious: Yes (Death)
  Sender: FDA-Public Use
  Company Number: JP-GILEAD-2012-0063042

PATIENT
  Sex: Female

DRUGS (3)
  1. AMBRISENTAN [Suspect]
     Indication: PULMONARY ARTERIAL HYPERTENSION
     Dosage: UNK UNK, QD
  2. BERASUS [Concomitant]
     Indication: PULMONARY ARTERIAL HYPERTENSION
     Dosage: 60 ?g, BID
     Route: 048
  3. REVATIO [Concomitant]
     Route: 048

REACTIONS (1)
  - Death [Fatal]
